FAERS Safety Report 6906963-4 (Version None)
Quarter: 2010Q3

REPORT INFORMATION
  Report Type: 
  Country: None (occurrence: None)
  Receive Date: 20100802
  Receipt Date: 20100720
  Transmission Date: 20110219
  Serious: Yes (Other)
  Sender: FDA-Public Use
  Company Number: 7010718

PATIENT
  Age: 48 Year
  Sex: Female
  Weight: 91 kg

DRUGS (5)
  1. REBIF [Suspect]
     Indication: MULTIPLE SCLEROSIS
     Dosage: 44 MCG, 3 IN 1 WK; SUBCUTANEOUS
     Route: 058
     Dates: start: 20030120
  2. DITROPAN [Concomitant]
  3. ACETAZOLAMIDE [Concomitant]
  4. MULTI-VITAMIN [Concomitant]
  5. ACETAMINOPHEN [Concomitant]

REACTIONS (7)
  - BLOOD TEST ABNORMAL [None]
  - FEELING HOT [None]
  - LUNG DISORDER [None]
  - MUSCLE TIGHTNESS [None]
  - PAIN IN EXTREMITY [None]
  - POSITRON EMISSION TOMOGRAM ABNORMAL [None]
  - THROMBOSIS [None]
